FAERS Safety Report 8360178-4 (Version None)
Quarter: 2012Q2

REPORT INFORMATION
  Report Type: 
  Country: None (occurrence: None)
  Receive Date: 20120515
  Receipt Date: 20120509
  Transmission Date: 20120825
  Serious: Yes (Hospitalization)
  Sender: FDA-Public Use
  Company Number: US-AMGEN-USASP2012023630

PATIENT
  Age: 47 Year
  Sex: Female

DRUGS (1)
  1. ENBREL [Suspect]
     Indication: RHEUMATOID ARTHRITIS
     Dosage: 50 MG, QWK
     Dates: start: 20120124

REACTIONS (8)
  - KIDNEY INFECTION [None]
  - NAUSEA [None]
  - CENTRAL VENOUS CATHETER REMOVAL [None]
  - CHEST DISCOMFORT [None]
  - DIZZINESS [None]
  - INJECTION SITE PAIN [None]
  - PAIN IN JAW [None]
  - FACIAL PAIN [None]
